FAERS Safety Report 7803083-1 (Version None)
Quarter: 2011Q4

REPORT INFORMATION
  Report Type: 
  Country: None (occurrence: None)
  Receive Date: 20111007
  Receipt Date: 20110926
  Transmission Date: 20120403
  Serious: Yes (Hospitalization)
  Sender: FDA-Public Use
  Company Number: ES-JNJFOC-20110911163

PATIENT
  Age: 71 Year
  Sex: Female

DRUGS (3)
  1. OMEPRAZOLE [Concomitant]
     Route: 048
     Dates: start: 20100101
  2. PREDNISONE [Concomitant]
     Indication: RHEUMATOID ARTHRITIS
     Route: 048
     Dates: start: 20100901
  3. SIMPONI [Suspect]
     Indication: RHEUMATOID ARTHRITIS
     Route: 058
     Dates: start: 20110616, end: 20110716

REACTIONS (1)
  - MONONEUROPATHY MULTIPLEX [None]
